FAERS Safety Report 23332965 (Version 1)
Quarter: 2023Q4

REPORT INFORMATION
  Report Type: Spontaneous
  Country: US (occurrence: US)
  Receive Date: 20231222
  Receipt Date: 20231222
  Transmission Date: 20240109
  Serious: Yes (Other)
  Sender: FDA-Public Use
  Company Number: US-SUN PHARMACEUTICAL INDUSTRIES LTD-2023R1-425046

PATIENT
  Age: 30 Year
  Sex: Female

DRUGS (2)
  1. DILTIAZEM [Suspect]
     Active Substance: DILTIAZEM
     Indication: Cutaneous calcification
     Dosage: 180 MILLIGRAM, DAILY
     Route: 065
  2. HYDROXYCHLOROQUINE [Suspect]
     Active Substance: HYDROXYCHLOROQUINE
     Indication: Cutaneous calcification
     Dosage: 400 MILLIGRAM, DAILY
     Route: 065

REACTIONS (1)
  - Condition aggravated [Unknown]
